FAERS Safety Report 20525127 (Version 1)
Quarter: 2022Q1

REPORT INFORMATION
  Report Type: Spontaneous
  Country: US (occurrence: None)
  Receive Date: 20220227
  Receipt Date: 20220227
  Transmission Date: 20220423
  Serious: No
  Sender: FDA-Public Use
  Company Number: None

PATIENT
  Age: 31 Year
  Sex: Male
  Weight: 85.7 kg

DRUGS (1)
  1. HIZENTRA [Suspect]
     Active Substance: HUMAN IMMUNOGLOBULIN G
     Indication: Chronic inflammatory demyelinating polyradiculoneuropathy
     Dosage: FREQUENCY : WEEKLY;?
     Route: 058
     Dates: start: 20220211, end: 20220222

REACTIONS (4)
  - Headache [None]
  - Musculoskeletal stiffness [None]
  - Pyrexia [None]
  - Contusion [None]

NARRATIVE: CASE EVENT DATE: 20220211
